FAERS Safety Report 13507342 (Version 1)
Quarter: 2017Q2

REPORT INFORMATION
  Report Type: Spontaneous
  Country: US (occurrence: US)
  Receive Date: 20170502
  Receipt Date: 20170502
  Transmission Date: 20170830
  Serious: No
  Sender: FDA-Public Use
  Company Number: None

PATIENT
  Age: 37 Year
  Sex: Female
  Weight: 99 kg

DRUGS (4)
  1. GILDESS FE 1/20 [Suspect]
     Active Substance: ETHINYL ESTRADIOL\NORETHINDRONE ACETATE
     Indication: CONTRACEPTION
     Route: 048
     Dates: start: 20100101, end: 20170402
  2. CLARITIN [Concomitant]
     Active Substance: LORATADINE
  3. ALLEGRA [Concomitant]
     Active Substance: FEXOFENADINE HYDROCHLORIDE
  4. GILDESS FE 1/20 [Suspect]
     Active Substance: ETHINYL ESTRADIOL\NORETHINDRONE ACETATE
     Indication: DYSMENORRHOEA
     Route: 048
     Dates: start: 20100101, end: 20170402

REACTIONS (3)
  - Vaginal haemorrhage [None]
  - Metrorrhagia [None]
  - Product use issue [None]

NARRATIVE: CASE EVENT DATE: 20170413
